FAERS Safety Report 23188308 (Version 5)
Quarter: 2024Q1

REPORT INFORMATION
  Report Type: Spontaneous
  Country: US (occurrence: US)
  Receive Date: 20231115
  Receipt Date: 20240129
  Transmission Date: 20240410
  Serious: Yes (Hospitalization)
  Sender: FDA-Public Use
  Company Number: US-PFIZER INC-PV202300182920

PATIENT
  Age: 63 Year
  Sex: Female

DRUGS (2)
  1. IBRANCE [Suspect]
     Active Substance: PALBOCICLIB
     Dosage: UNK, CYCLIC
  2. IBRANCE [Suspect]
     Active Substance: PALBOCICLIB
     Dosage: 125 MG

REACTIONS (14)
  - COVID-19 [Unknown]
  - Stomatitis [Unknown]
  - Tongue disorder [Unknown]
  - Salivary hypersecretion [Unknown]
  - White blood cell count decreased [Unknown]
  - Fatigue [Unknown]
  - Poor quality sleep [Unknown]
  - Full blood count abnormal [Recovering/Resolving]
  - Osteoarthritis [Unknown]
  - Nausea [Not Recovered/Not Resolved]
  - Rash pruritic [Unknown]
  - Miliaria [Unknown]
  - Pyrexia [Unknown]
  - Neutrophil count decreased [Unknown]

NARRATIVE: CASE EVENT DATE: 20231201
